FAERS Safety Report 7434704-3 (Version None)
Quarter: 2011Q2

REPORT INFORMATION
  Report Type: 
  Country: None (occurrence: None)
  Receive Date: 20110425
  Receipt Date: 20110412
  Transmission Date: 20111010
  Serious: Yes (Death, Life-Threatening, Hospitalization)
  Sender: FDA-Public Use
  Company Number: JP-BAYER-201011122BYL

PATIENT
  Age: 68 Year
  Sex: Male
  Weight: 63.7 kg

DRUGS (17)
  1. BLOPRESS [Concomitant]
     Dosage: SINCE BEFORE ADMINISTRATION
     Route: 048
     Dates: end: 20091201
  2. LENDORMIN [Concomitant]
     Dosage: SINCE BEFORE ADMINISTRATION
     Route: 048
  3. ISODINE [Concomitant]
     Indication: DENTAL DISORDER PROPHYLAXIS
     Dosage: SINCE BEFORE ADMINISTRATION
     Route: 049
  4. HIRUDOID [Concomitant]
     Indication: PROPHYLAXIS
     Route: 061
     Dates: start: 20090723
  5. TAKEPRON [Concomitant]
     Indication: GASTRITIS PROPHYLAXIS
     Dosage: SINCE BEFORE ADMINISTRATION
     Route: 048
     Dates: end: 20091201
  6. PATANOL [Concomitant]
     Dosage: SINCE BEFORE ADMINISTRATION
     Route: 031
  7. URSO 250 [Concomitant]
     Dosage: SINCE BEFORE ADMINISTRATION
     Route: 048
     Dates: end: 20091017
  8. AMLODIPINE [Concomitant]
     Dosage: SINCE BEFORE ADMINISTRATION
     Route: 048
     Dates: end: 20091017
  9. NEXAVAR [Suspect]
     Dosage: 400 MG (DAILY DOSE), , ORAL
     Route: 048
     Dates: start: 20091117, end: 20091201
  10. NEXAVAR [Suspect]
     Dosage: 400 MG (DAILY DOSE), , ORAL
     Route: 048
     Dates: start: 20091112, end: 20091114
  11. BIOFERMIN [Concomitant]
     Indication: DISBACTERIOSIS
     Dosage: SINCE BEFORE ADMINISTRATION
     Route: 048
     Dates: end: 20091201
  12. NEXAVAR [Suspect]
     Indication: HEPATIC NEOPLASM MALIGNANT
     Route: 048
     Dates: start: 20090723, end: 20090903
  13. NEXAVAR [Suspect]
     Dosage: 400 MG (DAILY DOSE), , ORAL
     Route: 048
     Dates: start: 20091005, end: 20091017
  14. ZYLORIC [Concomitant]
     Dosage: SINCE BEFORE ADMINISTRATION
     Route: 048
     Dates: end: 20091017
  15. UREPEARL [Concomitant]
     Indication: PROPHYLAXIS
     Route: 061
     Dates: start: 20090722
  16. SM (TAKA-DIASTASE) [Concomitant]
     Indication: GASTRITIS PROPHYLAXIS
     Dosage: SINCE BEFORE ADMINISTRATION
     Route: 048
     Dates: end: 20091201
  17. ASPARTATE POTASSIUM [Concomitant]
     Dosage: SINCE BEFORE ADMINISTRATION
     Route: 048
     Dates: end: 20091017

REACTIONS (14)
  - PYREXIA [None]
  - NAUSEA [None]
  - HEPATIC NEOPLASM MALIGNANT [None]
  - GASTROINTESTINAL HAEMORRHAGE [None]
  - HYPERTENSION [None]
  - ASCITES [None]
  - RENAL DISORDER [None]
  - HYPOPROTHROMBINAEMIA [None]
  - DIARRHOEA [None]
  - HEPATIC FUNCTION ABNORMAL [None]
  - HYPOALBUMINAEMIA [None]
  - HEPATORENAL SYNDROME [None]
  - JAUNDICE [None]
  - ABDOMINAL PAIN [None]
